FAERS Safety Report 9840700 (Version 4)
Quarter: 2014Q1

REPORT INFORMATION
  Report Type: Spontaneous
  Country: DE (occurrence: DE)
  Receive Date: 20140124
  Receipt Date: 20140307
  Transmission Date: 20141002
  Serious: Yes (Death, Other)
  Sender: FDA-Public Use
  Company Number: PHHY2014DE007793

PATIENT
  Sex: Female
  Weight: 75 kg

DRUGS (2)
  1. LEPONEX [Suspect]
     Indication: PSYCHOTIC DISORDER
     Dosage: UNK
     Route: 048
  2. LORAZEPAM [Concomitant]
     Dosage: 4 MG, 1 DF QD
     Route: 048
     Dates: start: 20131217

REACTIONS (3)
  - Embolism [Fatal]
  - Psychotic disorder [Unknown]
  - Aggression [Unknown]
